FAERS Safety Report 6686011-4 (Version None)
Quarter: 2010Q2

REPORT INFORMATION
  Report Type: 
  Country: None (occurrence: None)
  Receive Date: 20100415
  Receipt Date: 20100415
  Transmission Date: 20101027
  Serious: Yes (Hospitalization)
  Sender: FDA-Public Use
  Company Number: None

PATIENT
  Age: 44 Year
  Sex: Female
  Weight: 72.1219 kg

DRUGS (1)
  1. OCELLA 3 MG/0.03MG BARR/BAYER HEALTHCARE [Suspect]
     Indication: HORMONE REPLACEMENT THERAPY
     Dosage: 1 TABLET DAILY PO
     Route: 048
     Dates: start: 20100303, end: 20100408

REACTIONS (2)
  - PLEURAL EFFUSION [None]
  - PULMONARY EMBOLISM [None]
